FAERS Safety Report 6222852-5 (Version None)
Quarter: 2009Q2

REPORT INFORMATION
  Report Type: 
  Country: None (occurrence: None)
  Receive Date: 20090611
  Receipt Date: 20090603
  Transmission Date: 20091009
  Serious: Yes (Other)
  Sender: FDA-Public Use
  Company Number: B0578210A

PATIENT
  Age: 36 Year
  Sex: Male

DRUGS (3)
  1. ZIDOVUDINE [Suspect]
     Indication: HIV INFECTION
  2. LAMIVUDINE [Suspect]
     Indication: HIV INFECTION
  3. EFAVIRENZ [Suspect]
     Indication: HIV INFECTION

REACTIONS (10)
  - ARTHRALGIA [None]
  - BACTERIAL DNA TEST POSITIVE [None]
  - HAEMOGLOBIN DECREASED [None]
  - IMMUNE RECONSTITUTION SYNDROME [None]
  - NIGHT SWEATS [None]
  - RASH PAPULAR [None]
  - SKIN LESION [None]
  - SKIN ULCER [None]
  - TUBERCULID [None]
  - TUBERCULIN TEST POSITIVE [None]
